FAERS Safety Report 4697882-5 (Version None)
Quarter: 2005Q2

REPORT INFORMATION
  Report Type: 
  Country: None (occurrence: None)
  Receive Date: 20050623
  Receipt Date: 20050613
  Transmission Date: 20051028
  Serious: Yes (Other)
  Sender: FDA-Public Use
  Company Number: FR-ABBOTT-05P-056-0303073-00

PATIENT
  Age: 74 Year
  Sex: Male

DRUGS (2)
  1. DEPAKENE [Suspect]
     Indication: EPILEPSY
     Route: 048
     Dates: start: 20020101, end: 20050501
  2. DEPAKENE [Suspect]
     Indication: MENINGORRHAGIA
     Route: 048
     Dates: start: 20050501, end: 20050530

REACTIONS (5)
  - COAGULATION FACTOR DECREASED [None]
  - CONFUSIONAL STATE [None]
  - HYPERAMMONAEMIA [None]
  - METABOLIC ENCEPHALOPATHY [None]
  - PROTHROMBIN TIME RATIO DECREASED [None]
